FAERS Safety Report 7113276-7 (Version None)
Quarter: 2010Q4

REPORT INFORMATION
  Report Type: 
  Country: None (occurrence: None)
  Receive Date: 20101119
  Receipt Date: 20100518
  Transmission Date: 20110411
  Serious: No
  Sender: FDA-Public Use
  Company Number: A0862315A

PATIENT
  Age: 54 Year
  Sex: Female

DRUGS (2)
  1. WELLBUTRIN [Suspect]
  2. WELLBUTRIN [Suspect]

REACTIONS (2)
  - ABDOMINAL PAIN UPPER [None]
  - NAUSEA [None]
